FAERS Safety Report 22165939 (Version 2)
Quarter: 2023Q2

REPORT INFORMATION
  Report Type: Report from Study
  Country: US (occurrence: US)
  Receive Date: 20230403
  Receipt Date: 20230412
  Transmission Date: 20230721
  Serious: Yes (Other)
  Sender: FDA-Public Use
  Company Number: US-REGENERON PHARMACEUTICALS, INC.-2023-048101

PATIENT
  Sex: Female

DRUGS (1)
  1. EVINACUMAB [Suspect]
     Active Substance: EVINACUMAB
     Indication: Product used for unknown indication
     Dosage: UNK
     Route: 065

REACTIONS (3)
  - Pneumonia [Not Recovered/Not Resolved]
  - Infusion site bruising [Unknown]
  - Infusion site erythema [Unknown]
